FAERS Safety Report 4607560-6 (Version None)
Quarter: 2005Q1

REPORT INFORMATION
  Report Type: 
  Country: None (occurrence: None)
  Receive Date: 20050309
  Receipt Date: 20050302
  Transmission Date: 20050727
  Serious: Yes (Death, Hospitalization)
  Sender: FDA-Public Use
  Company Number: 2005SE01289

PATIENT
  Age: 86 Year
  Sex: Female

DRUGS (9)
  1. ZESTRIL [Suspect]
     Indication: HYPERTENSION
     Dosage: 10 MG DAILY PO
     Route: 048
  2. GLUCOPHAGE [Suspect]
     Indication: DIABETES MELLITUS
     Dosage: 500 MG BID PO
     Route: 048
     Dates: start: 20020101
  3. SELO-ZOK [Concomitant]
  4. ALBYL-E [Concomitant]
  5. DIURAL [Concomitant]
  6. ARICEPT [Concomitant]
  7. IMDUR [Concomitant]
  8. CIPRALEX [Concomitant]
  9. ZOCOR [Concomitant]

REACTIONS (5)
  - DEHYDRATION [None]
  - GASTROENTERITIS [None]
  - HYPOTENSION [None]
  - METABOLIC ACIDOSIS [None]
  - RENAL FAILURE ACUTE [None]
